FAERS Safety Report 6618909-7 (Version None)
Quarter: 2010Q1

REPORT INFORMATION
  Report Type: 
  Country: None (occurrence: None)
  Receive Date: 20100303
  Receipt Date: 20100218
  Transmission Date: 20100710
  Serious: Yes (Hospitalization, Other)
  Sender: FDA-Public Use
  Company Number: A-US2010-33831

PATIENT
  Age: 75 Year
  Sex: Male

DRUGS (3)
  1. TRACLEER [Suspect]
     Indication: PULMONARY ARTERIAL HYPERTENSION
     Dosage: ORAL
     Route: 048
     Dates: start: 20090304
  2. REVATIO [Concomitant]
  3. COUMADIN [Concomitant]

REACTIONS (5)
  - ERYTHEMA [None]
  - INFECTION [None]
  - PAIN IN EXTREMITY [None]
  - PROCEDURAL SITE REACTION [None]
  - SPINAL OPERATION [None]
